FAERS Safety Report 6654515-6 (Version None)
Quarter: 2010Q1

REPORT INFORMATION
  Report Type: 
  Country: None (occurrence: None)
  Receive Date: 20100326
  Receipt Date: 20100322
  Transmission Date: 20100710
  Serious: Yes (Death)
  Sender: FDA-Public Use
  Company Number: US-CELGENEUS-163-21880-09110605

PATIENT
  Sex: Female

DRUGS (3)
  1. REVLIMID [Suspect]
     Indication: MULTIPLE MYELOMA
     Route: 048
     Dates: start: 20090501, end: 20090601
  2. REVLIMID [Suspect]
     Route: 048
     Dates: start: 20090701
  3. REVLIMID [Suspect]

REACTIONS (1)
  - MULTIPLE MYELOMA [None]
